FAERS Safety Report 10064674 (Version 1)
Quarter: 2014Q2

REPORT INFORMATION
  Report Type: Spontaneous
  Country: US (occurrence: None)
  Receive Date: 20140407
  Receipt Date: 20140407
  Transmission Date: 20141212
  Serious: Yes (Other)
  Sender: FDA-Public Use
  Company Number: None

PATIENT
  Age: 58 Year
  Sex: Female
  Weight: 79.38 kg

DRUGS (1)
  1. DULOXETINE [Suspect]
     Indication: DEPRESSION
     Route: 048

REACTIONS (11)
  - Mood swings [None]
  - Product substitution issue [None]
  - Crying [None]
  - Poor quality sleep [None]
  - Morbid thoughts [None]
  - Confusional state [None]
  - Cognitive disorder [None]
  - Fatigue [None]
  - Drug withdrawal syndrome [None]
  - Product counterfeit [None]
  - Product quality issue [None]
